FAERS Safety Report 4658573-X (Version None)
Quarter: 2005Q2

REPORT INFORMATION
  Report Type: 
  Country: None (occurrence: None)
  Receive Date: 20050509
  Receipt Date: 20050430
  Transmission Date: 20051028
  Serious: Yes (Hospitalization, Other)
  Sender: FDA-Public Use
  Company Number: 163-20785-04100734

PATIENT
  Age: 61 Year
  Sex: Male
  Weight: 79 kg

DRUGS (8)
  1. THALOMID [Suspect]
     Indication: MULTIPLE MYELOMA
     Dosage: 50 MG, DAILY, ORAL
     Route: 048
     Dates: start: 20040707
  2. MELPHALAN (MELPHALAN) [Suspect]
     Indication: MULTIPLE MYELOMA
     Dosage: 370 MG, INTRAVENOUS
     Route: 042
     Dates: start: 20040915, end: 20040915
  3. VELCADE [Suspect]
     Indication: MULTIPLE MYELOMA
     Dosage: 1.9 MG
     Dates: start: 20040704
  4. CISPLATIN [Suspect]
     Indication: MULTIPLE MYELOMA
     Dates: start: 20040707
  5. ADRIAMYCIN PFS [Suspect]
     Indication: MULTIPLE MYELOMA
     Dates: start: 20040707
  6. DEXAMETHASONE [Suspect]
     Indication: MULTIPLE MYELOMA
     Dosage: 40 MG
     Dates: start: 20040707
  7. CYCLOPHOSPHAMIDE [Suspect]
     Indication: MULTIPLE MYELOMA
     Dates: start: 20040707
  8. ETOPOSIDE [Suspect]
     Indication: MULTIPLE MYELOMA
     Dates: start: 20040707

REACTIONS (16)
  - ATELECTASIS [None]
  - CONDITION AGGRAVATED [None]
  - DEEP VEIN THROMBOSIS [None]
  - FEBRILE NEUTROPENIA [None]
  - HAEMATOCRIT DECREASED [None]
  - HAEMOGLOBIN DECREASED [None]
  - LOBAR PNEUMONIA [None]
  - MUCOSAL INFLAMMATION [None]
  - NAUSEA [None]
  - PLATELET COUNT DECREASED [None]
  - PLEURAL EFFUSION [None]
  - RASH GENERALISED [None]
  - RASH PRURITIC [None]
  - RENAL FAILURE [None]
  - SINUSITIS [None]
  - VOMITING [None]
